FAERS Safety Report 15247014 (Version 8)
Quarter: 2020Q2

REPORT INFORMATION
  Report Type: Report from Study
  Country: CN (occurrence: CN)
  Receive Date: 20180806
  Receipt Date: 20200414
  Transmission Date: 20200713
  Serious: Yes (Death, Life-Threatening, Hospitalization)
  Sender: FDA-Public Use
  Company Number: CN-AMGEN-CHNCT2018093375

PATIENT
  Age: 67 Year
  Sex: Male
  Weight: 71.2 kg

DRUGS (51)
  1. BLINATUMOMAB [Suspect]
     Active Substance: BLINATUMOMAB
     Indication: B PRECURSOR TYPE ACUTE LEUKAEMIA
     Dosage: 28 MICROGRAM, QD
     Route: 042
     Dates: start: 20180424, end: 20180703
  2. LORATADINE. [Concomitant]
     Active Substance: LORATADINE
     Dosage: 10 MILLIGRAM
     Route: 048
     Dates: start: 20180505, end: 20180606
  3. COMBIZYM [Concomitant]
     Dosage: 24 MILLIGRAM
     Route: 048
     Dates: start: 20180517, end: 20180709
  4. POTASSIUM CITRATE. [Concomitant]
     Active Substance: POTASSIUM CITRATE
     Dosage: 1.45 MILLIGRAM
     Route: 048
     Dates: start: 20180425, end: 20180709
  5. COMPOUND LIDOCAINE HYDROCHLORIDE [Concomitant]
     Dosage: 0.1 GRAM
     Route: 058
     Dates: start: 20180704, end: 20180704
  6. ALANYL GLUTAMINE [Concomitant]
     Active Substance: ALANYL GLUTAMINE
     Dosage: 10 GRAM
     Route: 042
     Dates: start: 20180708, end: 20180708
  7. RBC [Concomitant]
     Active Substance: HUMAN RED BLOOD CELL
     Dosage: 2 UNK
     Route: 042
     Dates: start: 20180624, end: 20180624
  8. ACICLOVIR [Concomitant]
     Active Substance: ACYCLOVIR
     Dosage: 400 MILLIGRAM
     Route: 048
     Dates: start: 20180530, end: 20180607
  9. FUROSEMIDE. [Concomitant]
     Active Substance: FUROSEMIDE
     Dosage: 20 MILLIGRAM
     Route: 042
     Dates: start: 20180506, end: 20180709
  10. SODIUM CHLORIDE. [Concomitant]
     Active Substance: SODIUM CHLORIDE
     Dosage: 0.09 MLILLIGRAM AND 0.09 GRAM
     Route: 037
     Dates: start: 20180522, end: 20180614
  11. VANCOMYCIN HYDROCHLORIDE. [Concomitant]
     Active Substance: VANCOMYCIN HYDROCHLORIDE
     Dosage: 1000 MILLIGRAM
     Route: 042
     Dates: start: 20180522, end: 20190704
  12. AVELOX [Concomitant]
     Active Substance: MOXIFLOXACIN HYDROCHLORIDE
     Dosage: 100 MILLIGRAM
     Route: 048
     Dates: start: 20180530, end: 20180615
  13. POTASSIUM CHLORIDE. [Concomitant]
     Active Substance: POTASSIUM CHLORIDE
     Dosage: 500 -1000 MILLIGRAM, 1.5 - 3 GRAM
     Dates: start: 20180423, end: 20180709
  14. SPIRONOLACTONE. [Concomitant]
     Active Substance: SPIRONOLACTONE
     Dosage: 20 MILLIGRAM
     Route: 048
     Dates: start: 20180507, end: 20180601
  15. GLUCOSE;SODIUM CHLORIDE [Concomitant]
     Dosage: 500 MILLIGRAM
     Route: 042
     Dates: start: 20180707, end: 20180707
  16. ZOLPIDEM TARTRATE. [Concomitant]
     Active Substance: ZOLPIDEM TARTRATE
     Dosage: 10 MILLIGRAM
     Route: 048
     Dates: start: 20180425, end: 20180425
  17. DEXAMETHASONE SODIUM PHOSPHATE. [Concomitant]
     Active Substance: DEXAMETHASONE SODIUM PHOSPHATE
     Dosage: 3-10 MILLIGRAM
     Dates: start: 20180425, end: 20180704
  18. MONTMORILLONITE [Concomitant]
     Active Substance: MONTMORILLONITE
     Dosage: 3 GRAM
     Route: 048
     Dates: start: 20180618, end: 20180619
  19. METHYLPREDNISOLONE SODIUM SUCCINATE. [Concomitant]
     Active Substance: METHYLPREDNISOLONE SODIUM SUCCINATE
     Dosage: 40-500 MILLIGRAM
     Route: 042
     Dates: start: 20180423, end: 20180709
  20. PREDNISONE ACETATE [Concomitant]
     Active Substance: PREDNISONE ACETATE
     Dosage: 10-60 MILLIGRAM
     Route: 048
     Dates: start: 20180421, end: 20180709
  21. TRAMADOL HYDROCHLORIDE. [Concomitant]
     Active Substance: TRAMADOL HYDROCHLORIDE
     Dosage: 100 MILLIGRAM
     Route: 048
     Dates: start: 20180420, end: 20180420
  22. CALCIUM GLUCONATE. [Concomitant]
     Active Substance: CALCIUM GLUCONATE
     Dosage: 1 GRAM
     Route: 042
     Dates: start: 20180423, end: 20180709
  23. FAT EMULSION NOS [Concomitant]
     Active Substance: EGG PHOSPHOLIPIDS\SAFFLOWER OIL\SOYBEAN OIL
     Dosage: 250 MILLILITER
     Route: 042
     Dates: start: 20180708, end: 20180709
  24. CYTARABINE. [Concomitant]
     Active Substance: CYTARABINE
     Dosage: 50 MILLIGRAM
     Route: 037
     Dates: start: 20180522, end: 20180704
  25. HEPARIN SODIUM. [Concomitant]
     Active Substance: HEPARIN SODIUM
     Dosage: 0.625 UNK
     Route: 042
     Dates: start: 20180424, end: 20180520
  26. CEFACLOR. [Concomitant]
     Active Substance: CEFACLOR
     Dosage: 0.25 GRAM
     Route: 048
     Dates: start: 20180427, end: 20180619
  27. DEXAMETHASONE. [Concomitant]
     Active Substance: DEXAMETHASONE
     Dosage: 20 MILLIGRAM
     Dates: start: 20180424, end: 20180605
  28. HUMAN FIBRINOGEN [Concomitant]
     Active Substance: FIBRINOGEN HUMAN
     Dosage: 2 GRAM
     Route: 042
     Dates: start: 20180423, end: 20180423
  29. FILGRASTIM [Concomitant]
     Active Substance: FILGRASTIM
     Dosage: 300 MICROGRAM
     Route: 058
     Dates: start: 20180620, end: 20180708
  30. FLUNARIZINE HYDROCHLORIDE [Concomitant]
     Active Substance: FLUNARIZINE HYDROCHLORIDE
     Dosage: 5 MILLIGRAM
     Route: 048
     Dates: start: 20180425, end: 20180425
  31. ALBUMIN PREPARED FROM HUMAN PLASMA [Concomitant]
     Dosage: 20 MILLIGRAM AND 20 GRAM
     Route: 042
     Dates: start: 20180509, end: 20180709
  32. OMEPRAZOLE SODIUM [Concomitant]
     Active Substance: OMEPRAZOLE SODIUM
     Dosage: 40 MILLIGRAM
     Route: 042
     Dates: start: 20180423, end: 20180503
  33. GLUCOSE [Concomitant]
     Active Substance: DEXTROSE
     Dosage: 500 MILLIGRAM, 250 MILLILITER, AND 10 GRAM
     Route: 042
     Dates: start: 20180707, end: 20180709
  34. METHOTREXATE. [Concomitant]
     Active Substance: METHOTREXATE
     Dosage: 10-15 MILLIGRAM
     Route: 037
     Dates: start: 20180522, end: 20180704
  35. LIDOCAINE HYDROCHLORIDE. [Concomitant]
     Active Substance: LIDOCAINE HYDROCHLORIDE
     Dosage: 0.1 GRAM
     Route: 058
     Dates: start: 20180419, end: 20180627
  36. CEFTAZIDIME. [Concomitant]
     Active Substance: CEFTAZIDIME
     Dosage: 2 GRAM
     Route: 042
     Dates: start: 20180507, end: 20180518
  37. NYSFUNGIN [Concomitant]
     Dosage: 300 MILLIGRAM
     Route: 050
     Dates: start: 20180619, end: 20180702
  38. VORICONAZOLE. [Concomitant]
     Active Substance: VORICONAZOLE
     Dosage: 400 MILLIGRAM
     Route: 042
     Dates: start: 20180621, end: 20180709
  39. PIPERACILLIN SODIUM W/SULBACTAM SODIUM [Concomitant]
     Active Substance: PIPERACILLIN SODIUM\SULBACTAM SODIUM
     Dosage: 5 GRAM
     Route: 042
     Dates: start: 20180619, end: 20180620
  40. MEROPENEM. [Concomitant]
     Active Substance: MEROPENEM
     Dosage: 1 GRAM
     Route: 042
     Dates: start: 20180708, end: 20180709
  41. IBUPROFEN. [Concomitant]
     Active Substance: IBUPROFEN
     Dosage: 8 MILLILITER
     Route: 048
     Dates: start: 20180708, end: 20180708
  42. FAMOTIDINE. [Concomitant]
     Active Substance: FAMOTIDINE
     Dosage: 20 MILLIGRAM
     Route: 048
     Dates: start: 20180503, end: 20180615
  43. FLUCONAZOLE AND SODIUM CHLORIDE [Concomitant]
     Active Substance: FLUCONAZOLE
     Dosage: 300 MILLIGRAM
     Route: 048
     Dates: start: 20180619, end: 20180621
  44. BLOOD PLASMA [Concomitant]
     Active Substance: HUMAN PLASMA
     Dosage: 200 MILLIGRAM
     Route: 042
     Dates: start: 20180423, end: 20180423
  45. MANNITOL. [Concomitant]
     Active Substance: MANNITOL
     Dosage: 100 MILLILITER AND 25 GRAM
     Route: 042
     Dates: start: 20180519, end: 20180522
  46. OXYCODONE AND ACETAMINOPHEN [Concomitant]
     Active Substance: ACETAMINOPHEN\OXYCODONE HYDROCHLORIDE
     Dosage: 5 MILLIGRAM
     Route: 048
     Dates: start: 20180522, end: 20180522
  47. SULPERAZON [Concomitant]
     Active Substance: CEFOPERAZONE SODIUM\SULBACTAM SODIUM
     Dosage: 3 MILLIGRAM
     Route: 042
     Dates: start: 20180520, end: 20180530
  48. IMIPENEM [Concomitant]
     Active Substance: IMIPENEM
     Indication: RESPIRATORY FAILURE
     Dosage: 1 MILLIGRAM
     Route: 042
     Dates: start: 20180620, end: 20180704
  49. GLUTATHIONE [Concomitant]
     Active Substance: GLUTATHIONE
     Dosage: 1.8 GRAM
     Route: 042
     Dates: start: 20180423, end: 20180504
  50. HUMAN ALBUMIN [Concomitant]
     Active Substance: ALBUMIN HUMAN
     Dosage: 20 GRAM
     Route: 042
     Dates: start: 20180707, end: 20180709
  51. GRANULOCYTE COLONY STIMULATING FACTOR [Concomitant]
     Active Substance: GRANULOCYTE COLONY-STIMULATING FACTOR NOS
     Dosage: 300 MICROGRAM
     Route: 058
     Dates: start: 20180620, end: 20180708

REACTIONS (1)
  - Respiratory failure [Fatal]

NARRATIVE: CASE EVENT DATE: 20180709
